FAERS Safety Report 8900517 (Version 1)
Quarter: 2012Q4

REPORT INFORMATION
  Report Type: 
  Country: US (occurrence: US)
  Receive Date: 20121109
  Receipt Date: 20121109
  Transmission Date: 20130627
  Serious: Yes (Hospitalization)
  Sender: FDA-Public Use
  Company Number: US-AMGEN-USASP2012068834

PATIENT
  Age: 72 Year
  Sex: Female
  Weight: 72.11 kg

DRUGS (9)
  1. PROLIA [Suspect]
     Indication: OSTEOPOROSIS
     Dosage: 60 mg, q6mo
     Route: 058
     Dates: start: 20120910, end: 20120910
  2. DIOVAN [Concomitant]
     Dosage: UNK
  3. PROAIR                             /00139502/ [Concomitant]
  4. ATENOLOL [Concomitant]
  5. SYMBICORT [Concomitant]
  6. SINGULAIR [Concomitant]
  7. NASONEX [Concomitant]
  8. HYDROCHLOROTHIAZIDE [Concomitant]
     Indication: HYPERTENSION
     Dosage: 25 mg, qd
     Route: 048
  9. PREVACID [Concomitant]

REACTIONS (4)
  - Chest pain [Recovered/Resolved]
  - Hypertension [Recovering/Resolving]
  - Dizziness [Recovering/Resolving]
  - Facial pain [Recovering/Resolving]
